FAERS Safety Report 8812563 (Version 1)
Quarter: 2012Q4

REPORT INFORMATION
  Report Type: 
  Country: IN (occurrence: IN)
  Receive Date: 20120927
  Receipt Date: 20120927
  Transmission Date: 20130627
  Serious: Yes (Death, Other)
  Sender: FDA-Public Use
  Company Number: PHHY2008IN18592

PATIENT
  Age: 35 Year
  Sex: Female

DRUGS (2)
  1. GLIVEC [Suspect]
     Indication: CHRONIC MYELOID LEUKAEMIA
     Dosage: 600 mg
     Route: 048
     Dates: start: 20080129
  2. FLUCONAZOLE [Concomitant]
     Indication: CANDIDIASIS
     Dosage: 200 mg, UNK
     Dates: start: 20080304, end: 20080310

REACTIONS (5)
  - Chronic myeloid leukaemia [Fatal]
  - Malignant neoplasm progression [Fatal]
  - Splenomegaly [Unknown]
  - Oral candidiasis [Unknown]
  - Oropharyngeal candidiasis [Unknown]
